FAERS Safety Report 4334110-4 (Version None)
Quarter: 2004Q2

REPORT INFORMATION
  Report Type: 
  Country: None (occurrence: None)
  Receive Date: 20040405
  Receipt Date: 20040329
  Transmission Date: 20050107
  Serious: Yes (Hospitalization)
  Sender: FDA-Public Use
  Company Number: 2004-03-2259

PATIENT
  Sex: Male

DRUGS (2)
  1. REBETOL [Suspect]
     Indication: HEPATITIS
     Dosage: ORAL
     Route: 048
     Dates: end: 20020701
  2. INTRON A [Suspect]
     Indication: HEPATITIS
     Dosage: TIW SUBCUTANEOUS
     Route: 058
     Dates: end: 20020701

REACTIONS (1)
  - MYOCARDIAL INFARCTION [None]
